FAERS Safety Report 9007881 (Version 2)
Quarter: 2013Q3

REPORT INFORMATION
  Report Type: Spontaneous
  Country: US (occurrence: US)
  Receive Date: 20130111
  Receipt Date: 20130801
  Transmission Date: 20140515
  Serious: Yes (Hospitalization, Other)
  Sender: FDA-Public Use
  Company Number: US-BAYER-2013-003129

PATIENT
  Age: 46 Year
  Sex: Female
  Weight: 86.17 kg

DRUGS (10)
  1. YASMIN [Suspect]
     Dosage: UNK
     Dates: start: 200301
  2. YASMIN [Suspect]
     Dosage: UNK
     Dates: start: 2001, end: 2010
  3. YAZ [Suspect]
     Dosage: UNK
     Dates: start: 200301
  4. OCELLA [Suspect]
     Dosage: UNK
     Dates: start: 200301
  5. OCELLA [Suspect]
     Dosage: UNK
     Dates: start: 2001, end: 2010
  6. BENICAR [Concomitant]
  7. SYNTHROID [Concomitant]
  8. EFFEXOR [Concomitant]
  9. ALLEGRA [Concomitant]
  10. LORAZEPAM [Concomitant]

REACTIONS (8)
  - Cerebrovascular accident [None]
  - Pulmonary embolism [None]
  - Deep vein thrombosis [None]
  - Myocardial infarction [None]
  - Gallbladder disorder [None]
  - Pain [None]
  - Injury [None]
  - Mental disorder [None]
